APPROVED DRUG PRODUCT: MIVACRON
Active Ingredient: MIVACURIUM CHLORIDE
Strength: EQ 2MG BASE/ML (EQ 2MG BASE/ML)  **Federal Register determination that product was not discontinued or withdrawn for safety or effectiveness reasons**
Dosage Form/Route: SOLUTION;INTRAVENOUS
Application: N020098 | Product #001
Applicant: ABBVIE INC
Approved: Jan 22, 1992 | RLD: Yes | RS: No | Type: DISCN